FAERS Safety Report 16712772 (Version 1)
Quarter: 2019Q3

REPORT INFORMATION
  Report Type: Spontaneous
  Country: US (occurrence: US)
  Receive Date: 20190817
  Receipt Date: 20190817
  Transmission Date: 20191004
  Serious: No
  Sender: FDA-Public Use
  Company Number: US-UNITED THERAPEUTICS-UNT-2019-013502

PATIENT
  Age: 44 Year
  Sex: Male

DRUGS (2)
  1. REMODULIN [Suspect]
     Active Substance: TREPROSTINIL
     Dosage: 0.0205? ?G/KG, CONTINUING
     Route: 058
     Dates: start: 20190723
  2. REMODULIN [Suspect]
     Active Substance: TREPROSTINIL
     Indication: PULMONARY ARTERIAL HYPERTENSION
     Dosage: 0.0205? ?G/KG, CONTINUING
     Route: 058
     Dates: start: 20190626

REACTIONS (4)
  - Infusion site cellulitis [Unknown]
  - Device dislocation [Unknown]
  - Inadequate aseptic technique in use of product [Unknown]
  - Arthralgia [Not Recovered/Not Resolved]

NARRATIVE: CASE EVENT DATE: 20190808
